FAERS Safety Report 18696673 (Version 2)
Quarter: 2022Q1

REPORT INFORMATION
  Report Type: Spontaneous
  Country: US (occurrence: US)
  Receive Date: 20210104
  Receipt Date: 20220105
  Transmission Date: 20220423
  Serious: Yes (Hospitalization)
  Sender: FDA-Public Use
  Company Number: US-ROCHE-2668154

PATIENT
  Age: 97 Year
  Sex: Male
  Weight: 81.6 kg

DRUGS (11)
  1. ALTEPLASE [Suspect]
     Active Substance: ALTEPLASE
     Indication: Cerebrovascular accident
     Dosage: DOSAGE-7.29MG,BOLUS DOSE X 1, ONGOING -NO
     Route: 040
     Dates: start: 20200826, end: 20200826
  2. ALTEPLASE [Suspect]
     Active Substance: ALTEPLASE
     Dosage: DOSAGE-65.6MG,ONLY ONE DOSE; ONGOING -NO
     Route: 041
     Dates: start: 20200826, end: 20200826
  3. COREG [Concomitant]
     Active Substance: CARVEDILOL
     Indication: Hypertension
  4. LASIX [Concomitant]
     Active Substance: FUROSEMIDE
     Route: 048
  5. ISOSORBIDE MONONITRATE [Concomitant]
     Active Substance: ISOSORBIDE MONONITRATE
     Indication: Hypertension
     Route: 048
  6. SPIRONOLACTONE [Concomitant]
     Active Substance: SPIRONOLACTONE
     Route: 048
  7. INSULIN LISPRO [Concomitant]
     Active Substance: INSULIN LISPRO
     Indication: Diabetes mellitus
     Dosage: BEFORE MEALS
     Route: 058
  8. PLAVIX [Concomitant]
     Active Substance: CLOPIDOGREL BISULFATE
     Route: 048
  9. LISINOPRIL [Concomitant]
     Active Substance: LISINOPRIL
     Indication: Hypertension
     Route: 048
  10. ASPIRIN [Concomitant]
     Active Substance: ASPIRIN
     Route: 048
  11. SIMVASTATIN [Concomitant]
     Active Substance: SIMVASTATIN
     Indication: Hyperlipidaemia
     Route: 048

REACTIONS (2)
  - Haemorrhagic transformation stroke [Not Recovered/Not Resolved]
  - Product complaint [Unknown]

NARRATIVE: CASE EVENT DATE: 20200826
